FAERS Safety Report 21666169 (Version 2)
Quarter: 2022Q4

REPORT INFORMATION
  Report Type: Report from Study
  Country: CH (occurrence: None)
  Receive Date: 20221201
  Receipt Date: 20221230
  Transmission Date: 20230113
  Serious: No
  Sender: FDA-Public Use
  Company Number: CH-Merck Healthcare KGaA-9293558

PATIENT
  Age: 37 Year
  Sex: Female
  Weight: 86 kg

DRUGS (3)
  1. REBIF [Suspect]
     Active Substance: INTERFERON BETA-1A
     Indication: Multiple sclerosis
     Dosage: BATCH NUMBER: BA081262, EXPIRY DATE: /JUN/2023
     Route: 058
     Dates: start: 20211011, end: 20220112
  2. FOLIC ACID [Concomitant]
     Active Substance: FOLIC ACID
     Indication: Product used for unknown indication
  3. ELEVIT [ASCORBIC ACID;BIOTIN;CALCIUM;CALCIUM PANTOTHENATE;COPPER;CYANO [Concomitant]
     Indication: Product used for unknown indication
     Dosage: VITAMIN PREPARATION FOR PREGNANCY

REACTIONS (2)
  - Normal newborn [Recovered/Resolved]
  - Maternal exposure during pregnancy [Recovered/Resolved]

NARRATIVE: CASE EVENT DATE: 20211201
